FAERS Safety Report 5177062-X (Version None)
Quarter: 2006Q4

REPORT INFORMATION
  Report Type: 
  Country: None (occurrence: None)
  Receive Date: 20061218
  Receipt Date: 20061212
  Transmission Date: 20070319
  Serious: Yes (Other)
  Sender: FDA-Public Use
  Company Number: GB-GLAXOSMITHKLINE-B0450760A

PATIENT
  Age: 36 Year
  Sex: Female

DRUGS (2)
  1. CEFUROXIME SODIUM [Suspect]
     Indication: SEPSIS
     Route: 042
     Dates: start: 20061116, end: 20061116
  2. ACETAMINOPHEN [Concomitant]
     Indication: PAIN
     Dosage: 1G FOUR TIMES PER DAY
     Route: 065
     Dates: start: 20061116

REACTIONS (3)
  - LOCAL SWELLING [None]
  - PHARYNGEAL OEDEMA [None]
  - PRURITUS [None]
